FAERS Safety Report 7382541-0 (Version None)
Quarter: 2011Q1

REPORT INFORMATION
  Report Type: 
  Country: None (occurrence: None)
  Receive Date: 20110329
  Receipt Date: 20110323
  Transmission Date: 20110831
  Serious: Yes (Other)
  Sender: FDA-Public Use
  Company Number: US-BRISTOL-MYERS SQUIBB COMPANY-15628449

PATIENT
  Age: 68 Year
  Sex: Male

DRUGS (9)
  1. PREVACID [Concomitant]
  2. ORENCIA [Suspect]
     Indication: RHEUMATOID ARTHRITIS
     Dosage: LAST DOSE:18FEB11,OK62700 (18FEB11),OK66157 (18JAN11),UNK(XXDEC10),0H52205(24NOV10),OH52012(OCT10)
     Dates: start: 20100901
  3. METHOTREXATE [Concomitant]
  4. SORIATANE [Concomitant]
  5. MULTI-VITAMIN [Concomitant]
  6. FISH OIL [Concomitant]
  7. PROSCAR [Concomitant]
  8. FOLIC ACID [Concomitant]
  9. SYNTHROID [Concomitant]

REACTIONS (1)
  - MULTIPLE SYSTEM ATROPHY [None]
